FAERS Safety Report 9459824 (Version 1)
Quarter: 2013Q3

REPORT INFORMATION
  Report Type: Spontaneous
  Country: US (occurrence: US)
  Receive Date: 20130815
  Receipt Date: 20130815
  Transmission Date: 20140515
  Serious: Yes (Death)
  Sender: FDA-Public Use
  Company Number: US-PFIZER INC-2013234137

PATIENT
  Age: 60 Year
  Sex: Male

DRUGS (1)
  1. REVATIO [Suspect]
     Indication: PULMONARY HYPERTENSION
     Dosage: FOUR 20MG TABLETS THREE TIMES A DAY
     Dates: start: 20120611

REACTIONS (3)
  - Cardiac disorder [Fatal]
  - Infection [Fatal]
  - Incorrect dose administered [Unknown]
